FAERS Safety Report 9414693 (Version 1)
Quarter: 2013Q3

REPORT INFORMATION
  Report Type: Spontaneous
  Country: DK (occurrence: DK)
  Receive Date: 20130723
  Receipt Date: 20130723
  Transmission Date: 20140515
  Serious: Yes (Hospitalization)
  Sender: FDA-Public Use
  Company Number: DK-BAXTER-2013BAX027766

PATIENT
  Age: 43 Year
  Sex: Female

DRUGS (6)
  1. SENDOXAN [Suspect]
     Indication: BREAST CANCER
     Dosage: DOSIS: 1,11 MG X 1, STYRKE: 1 G
     Route: 042
     Dates: start: 20130318
  2. SENDOXAN [Suspect]
     Dosage: DOSIS: 1,11 MG X 1, STYRKE: 1 G
     Route: 042
     Dates: start: 20130408
  3. SENDOXAN [Suspect]
     Dosage: DOSIS: 1,11 MG X 1, STYRKE: 1 G
     Route: 042
     Dates: start: 20130502
  4. EPIRUBICIN [Suspect]
     Indication: BREAST CANCER
     Dosage: DOSIS: 170 MG X 1, STYRKE: 50 MG
     Route: 042
     Dates: start: 20130318, end: 20130502
  5. EPIRUBICIN ACTAVIS [Suspect]
     Dosage: DOSIS: 170 MG X 1, STYRKE: 50 MG
     Route: 042
     Dates: start: 20130408
  6. EPIRUBICIN ACTAVIS [Suspect]
     Dosage: DOSIS: 170 MG X 1, STYRKE: 50 MG
     Route: 042
     Dates: start: 20130502

REACTIONS (5)
  - Hypersensitivity [Recovered/Resolved]
  - Dyspnoea [Recovered/Resolved]
  - Nausea [Recovered/Resolved]
  - Fatigue [Recovered/Resolved]
  - Dyspnoea [Recovered/Resolved]
